FAERS Safety Report 8209108-6 (Version None)
Quarter: 2012Q1

REPORT INFORMATION
  Report Type: 
  Country: None (occurrence: None)
  Receive Date: 20120314
  Receipt Date: 20120312
  Transmission Date: 20120608
  Serious: Yes (Hospitalization)
  Sender: FDA-Public Use
  Company Number: US-AMGEN-USASP2011059734

PATIENT
  Age: 80 Year
  Sex: Female
  Weight: 59.41 kg

DRUGS (13)
  1. APAP W/ CODEINE [Concomitant]
  2. LEVOTHYROXINE SODIUM [Concomitant]
     Indication: HYPOTHYROIDISM
     Dosage: .125 MUG, UNK
  3. MONTELUKAST [Concomitant]
     Dosage: 10 MG, UNK
  4. CALTRATE D [Concomitant]
     Dosage: 600 MG, BID
  5. POTASSIUM CHLORIDE [Concomitant]
     Dosage: UNK
  6. BUMETANIDE [Concomitant]
     Dosage: 1 MG, UNK
  7. CARVEDILOL [Concomitant]
     Dosage: 6.25 MG, BID
  8. PROLIA [Suspect]
     Indication: OSTEOPOROSIS POSTMENOPAUSAL
     Dosage: 60 MG, Q6MO
     Route: 058
     Dates: start: 20111018, end: 20111020
  9. LISINOPRIL [Concomitant]
     Dosage: 5 MG, UNK
  10. MUCINEX [Concomitant]
     Dosage: 6 MG, BID
  11. OMEPRAZOLE [Concomitant]
     Dosage: 20 MG, UNK
  12. VITAMIN D [Concomitant]
     Dosage: 2000 IU, QD
  13. LORATADINE [Concomitant]
     Dosage: UNK

REACTIONS (2)
  - PNEUMONIA ASPIRATION [None]
  - HYPOCALCAEMIA [None]
